FAERS Safety Report 24755490 (Version 1)
Quarter: 2024Q4

REPORT INFORMATION
  Report Type: Report from Study
  Country: US (occurrence: US)
  Receive Date: 20241219
  Receipt Date: 20241219
  Transmission Date: 20250114
  Serious: Yes (Death, Other)
  Sender: GILEAD
  Company Number: US-GILEAD-2018-0318683

PATIENT
  Age: 61 Year
  Sex: Female

DRUGS (3)
  1. AZTREONAM LYSINE [Suspect]
     Active Substance: AZTREONAM LYSINE
     Indication: Bronchiectasis
     Dosage: 75 MG, TID (28 DAYS ON, 28 DAYS OFF)
     Route: 055
     Dates: start: 20160726
  2. AZTREONAM LYSINE [Suspect]
     Active Substance: AZTREONAM LYSINE
     Indication: Cystic fibrosis
     Dosage: 1 VIAL, TID, USING THE NEBULIZER FOR 28 DAYS ON AND 28 DAYS OFF
     Route: 055
     Dates: start: 20240226
  3. AZTREONAM LYSINE [Suspect]
     Active Substance: AZTREONAM LYSINE
     Dosage: 75 MG, TID
     Route: 055
     Dates: start: 20160722, end: 20241218

REACTIONS (2)
  - Death [Fatal]
  - Off label use [Recovered/Resolved]
